FAERS Safety Report 12844660 (Version 1)
Quarter: 2016Q4

REPORT INFORMATION
  Report Type: Spontaneous
  Country: US (occurrence: US)
  Receive Date: 20161013
  Receipt Date: 20161013
  Transmission Date: 20170207
  Serious: No
  Sender: FDA-Public Use
  Company Number: US-ROCHE-1732272

PATIENT
  Sex: Male

DRUGS (22)
  1. SMZ-TMP [Concomitant]
     Active Substance: SULFAMETHOXAZOLE\TRIMETHOPRIM
  2. BUPROPION. [Concomitant]
     Active Substance: BUPROPION
  3. VENTOLIN [Concomitant]
     Active Substance: ALBUTEROL SULFATE
  4. BENZONATATE. [Concomitant]
     Active Substance: BENZONATATE
  5. CODEINE [Concomitant]
     Active Substance: CODEINE
  6. ESBRIET [Suspect]
     Active Substance: PIRFENIDONE
     Indication: IDIOPATHIC PULMONARY FIBROSIS
     Route: 048
     Dates: start: 20151024
  7. APAP/OXYCODONE [Concomitant]
     Active Substance: ACETAMINOPHEN\OXYCODONE HYDROCHLORIDE
  8. WAL-TUSSIN [Concomitant]
     Active Substance: DEXTROMETHORPHAN HYDROBROMIDE
  9. CELECOXIB. [Concomitant]
     Active Substance: CELECOXIB
  10. LANSOPRAZOLE. [Concomitant]
     Active Substance: LANSOPRAZOLE
  11. HYDROXYZINE [Concomitant]
     Active Substance: HYDROXYZINE\HYDROXYZINE HYDROCHLORIDE
  12. AMOXICILLIN. [Concomitant]
     Active Substance: AMOXICILLIN
  13. CLOPIDOGREL [Concomitant]
     Active Substance: CLOPIDOGREL BISULFATE
  14. PERCOCET [Concomitant]
     Active Substance: ACETAMINOPHEN\OXYCODONE HYDROCHLORIDE
  15. NITROSTAT [Concomitant]
     Active Substance: NITROGLYCERIN
  16. ARIPIPRAZOLE. [Concomitant]
     Active Substance: ARIPIPRAZOLE
  17. ATORVASTATIN [Concomitant]
     Active Substance: ATORVASTATIN
  18. METOPROLOL. [Concomitant]
     Active Substance: METOPROLOL
  19. SERTRALINE [Concomitant]
     Active Substance: SERTRALINE HYDROCHLORIDE
  20. FUROSEMIDE. [Concomitant]
     Active Substance: FUROSEMIDE
  21. LISINOPRIL. [Concomitant]
     Active Substance: LISINOPRIL
  22. RANITIDINE. [Concomitant]
     Active Substance: RANITIDINE

REACTIONS (2)
  - Drug dose omission [Unknown]
  - Abdominal discomfort [Unknown]
